FAERS Safety Report 4937077-0 (Version None)
Quarter: 2006Q1

REPORT INFORMATION
  Report Type: 
  Country: None (occurrence: None)
  Receive Date: 20060307
  Receipt Date: 20060307
  Transmission Date: 20060701
  Serious: Yes (Other)
  Sender: FDA-Public Use
  Company Number: None

PATIENT
  Sex: Male
  Weight: 88.4514 kg

DRUGS (2)
  1. OXYCODONE HCL [Suspect]
     Indication: NON-HODGKIN'S LYMPHOMA RECURRENT
     Dosage: ONE TABLET Q12H PO
     Route: 048
     Dates: start: 20050101, end: 20051101
  2. OXYCODONE HCL [Suspect]
     Indication: NON-HODGKIN'S LYMPHOMA RECURRENT
     Dosage: ONE TABLET Q12 H PO
     Route: 048
     Dates: start: 20050101, end: 20051101

REACTIONS (2)
  - ABDOMINAL PAIN [None]
  - PHARMACEUTICAL PRODUCT COMPLAINT [None]
